FAERS Safety Report 10049845 (Version 2)
Quarter: 2014Q2

REPORT INFORMATION
  Report Type: Spontaneous
  Country: US (occurrence: None)
  Receive Date: 20140328
  Receipt Date: 20140423
  Transmission Date: 20141212
  Serious: Yes (Other)
  Sender: FDA-Public Use
  Company Number: C14 012 AE

PATIENT
  Age: 1 Month
  Sex: Male
  Weight: 3.6 kg

DRUGS (5)
  1. FIRST - LANSOPRAZOLE (3 MG/ML) [Suspect]
     Indication: GASTROOESOPHAGEAL REFLUX DISEASE
     Route: 048
     Dates: start: 20140311, end: 20140313
  2. ALIMENTUM [Concomitant]
  3. VITAMIN D DROPS [Concomitant]
  4. A PROBIOTIC [Concomitant]
  5. LANSOPRAZOLE [Concomitant]

REACTIONS (9)
  - Frequent bowel movements [None]
  - Hypersensitivity [None]
  - Haematochezia [None]
  - Mucous stools [None]
  - Flatulence [None]
  - Irritability [None]
  - Abnormal faeces [None]
  - Abnormal behaviour [None]
  - Reaction to drug excipients [None]
